FAERS Safety Report 11496011 (Version 1)
Quarter: 2015Q3

REPORT INFORMATION
  Report Type: Spontaneous
  Country: US (occurrence: US)
  Receive Date: 20150911
  Receipt Date: 20150911
  Transmission Date: 20151125
  Serious: No
  Sender: FDA-Public Use
  Company Number: US-GLAXOSMITHKLINE-US2015GSK130137

PATIENT
  Sex: Male

DRUGS (1)
  1. SORIATANE [Suspect]
     Active Substance: ACITRETIN
     Indication: PSORIASIS

REACTIONS (5)
  - Intentional product use issue [Unknown]
  - Drug effect decreased [Unknown]
  - Dysphonia [Not Recovered/Not Resolved]
  - Inappropriate schedule of drug administration [Unknown]
  - VIIth nerve paralysis [Unknown]
